FAERS Safety Report 7254254-7 (Version None)
Quarter: 2011Q1

REPORT INFORMATION
  Report Type: 
  Country: None (occurrence: None)
  Receive Date: 20110129
  Receipt Date: 20100115
  Transmission Date: 20110831
  Serious: Yes (Hospitalization)
  Sender: FDA-Public Use
  Company Number: US-ABBOTT-10P-163-0620129-00

PATIENT
  Sex: Female

DRUGS (2)
  1. HUMIRA [Suspect]
     Indication: CROHN'S DISEASE
     Dates: start: 20091228, end: 20091228
  2. HUMIRA [Suspect]
     Dates: start: 20100112, end: 20100112

REACTIONS (2)
  - PAIN [None]
  - NAUSEA [None]
